FAERS Safety Report 13147074 (Version 2)
Quarter: 2019Q3

REPORT INFORMATION
  Report Type: Spontaneous
  Country: NL (occurrence: NL)
  Receive Date: 20170125
  Receipt Date: 20190920
  Transmission Date: 20191004
  Serious: Yes (Other)
  Sender: FDA-Public Use
  Company Number: NL-BAUSCH-BL-2017-001814

PATIENT
  Age: 60 Year
  Sex: Male

DRUGS (3)
  1. RIBAVIRIN. [Suspect]
     Active Substance: RIBAVIRIN
     Indication: HEPATITIS E
     Route: 065
     Dates: start: 201505, end: 201509
  2. RIBAVIRIN. [Suspect]
     Active Substance: RIBAVIRIN
     Indication: DISEASE RECURRENCE
     Dosage: DOSE WAS INCREASED
     Route: 065
     Dates: start: 201509
  3. RIBAVIRIN. [Suspect]
     Active Substance: RIBAVIRIN
     Dosage: DOSE WAS REDUCED AND DISCONTINUED AFTER 8 WEEKS
     Route: 065
     Dates: start: 2015

REACTIONS (3)
  - Drug resistance [Unknown]
  - Drug ineffective [Unknown]
  - Haematotoxicity [Unknown]

NARRATIVE: CASE EVENT DATE: 2015
